FAERS Safety Report 6556620-1 (Version None)
Quarter: 2010Q1

REPORT INFORMATION
  Report Type: 
  Country: None (occurrence: None)
  Receive Date: 20100128
  Receipt Date: 20100121
  Transmission Date: 20100710
  Serious: Yes (Hospitalization)
  Sender: FDA-Public Use
  Company Number: US-GILEAD-2010-0026525

PATIENT
  Sex: Male
  Weight: 87.622 kg

DRUGS (12)
  1. LETAIRIS [Suspect]
     Indication: PULMONARY ARTERIAL HYPERTENSION
     Route: 048
     Dates: start: 20091202
  2. FUROSEMIDE [Concomitant]
  3. SPIRONOLACTONE [Concomitant]
  4. DILTIAZEM [Concomitant]
  5. PANTOPRAZOLE [Concomitant]
  6. PLAVIX [Concomitant]
  7. ASPIRIN [Concomitant]
  8. LEXAPRO [Concomitant]
  9. ANDROGEL [Concomitant]
  10. MULTI-VITAMIN [Concomitant]
  11. VITAMIN B-12 [Concomitant]
  12. MIRALAX [Concomitant]

REACTIONS (1)
  - PULMONARY HYPERTENSION [None]
